FAERS Safety Report 10213871 (Version 1)
Quarter: 2014Q2

REPORT INFORMATION
  Report Type: Spontaneous
  Country: IT (occurrence: IT)
  Receive Date: 20140603
  Receipt Date: 20140603
  Transmission Date: 20141212
  Serious: Yes (Other)
  Sender: FDA-Public Use
  Company Number: IT-MYLANLABS-2014S1012279

PATIENT
  Age: 82 Year
  Sex: Male

DRUGS (3)
  1. ALPRAZOLAM [Suspect]
     Indication: PRODUCT USED FOR UNKNOWN INDICATION
     Dates: start: 20140411, end: 20140412
  2. CARDURA [Concomitant]
     Indication: PRODUCT USED FOR UNKNOWN INDICATION
  3. SEROQUEL [Concomitant]
     Indication: PRODUCT USED FOR UNKNOWN INDICATION

REACTIONS (2)
  - Fall [Not Recovered/Not Resolved]
  - Blood pressure increased [Not Recovered/Not Resolved]
